FAERS Safety Report 24178284 (Version 1)
Quarter: 2024Q3

REPORT INFORMATION
  Report Type: Spontaneous
  Country: JP (occurrence: JP)
  Receive Date: 20240806
  Receipt Date: 20240806
  Transmission Date: 20241017
  Serious: Yes (Hospitalization, Other)
  Sender: MYLAN
  Company Number: JP-MYLANLABS-2024M1071971

PATIENT
  Age: 81 Year
  Sex: Male

DRUGS (8)
  1. DOBUTAMINE [Suspect]
     Active Substance: DOBUTAMINE HYDROCHLORIDE
     Indication: Heart failure with preserved ejection fraction
     Dosage: UNK
     Route: 042
  2. DOBUTAMINE [Suspect]
     Active Substance: DOBUTAMINE HYDROCHLORIDE
     Dosage: UP-TITRATION
     Route: 042
  3. EPLERENONE [Suspect]
     Active Substance: EPLERENONE
     Indication: Heart failure with preserved ejection fraction
     Route: 065
  4. TOLVAPTAN [Suspect]
     Active Substance: TOLVAPTAN
     Indication: Heart failure with preserved ejection fraction
     Route: 065
  5. TOLVAPTAN [Suspect]
     Active Substance: TOLVAPTAN
     Dosage: UP-TITRATED
     Route: 065
  6. FUROSEMIDE [Suspect]
     Active Substance: FUROSEMIDE
     Indication: Heart failure with preserved ejection fraction
     Dosage: UNK
     Route: 042
  7. CANDESARTAN [Suspect]
     Active Substance: CANDESARTAN
     Indication: Heart failure with preserved ejection fraction
     Route: 065
  8. AZOSEMIDE [Suspect]
     Active Substance: AZOSEMIDE
     Indication: Heart failure with preserved ejection fraction
     Route: 065

REACTIONS (2)
  - Drug ineffective [Unknown]
  - Treatment noncompliance [Unknown]
